FAERS Safety Report 4750312-7 (Version None)
Quarter: 2005Q3

REPORT INFORMATION
  Report Type: 
  Country: None (occurrence: None)
  Receive Date: 20050818
  Receipt Date: 20050805
  Transmission Date: 20060218
  Serious: Yes (Other)
  Sender: FDA-Public Use
  Company Number: 2005JP001591

PATIENT
  Age: 55 Year
  Sex: Male

DRUGS (3)
  1. PROGRAF [Suspect]
     Indication: LIVER TRANSPLANT
  2. METHYLPREDNISOLONE (METHYLPREDNISOLONE) [Suspect]
     Indication: LIVER TRANSPLANT
  3. CELLCEPT [Suspect]
     Indication: LIVER TRANSPLANT

REACTIONS (6)
  - CARDIAC FAILURE [None]
  - COMPLICATIONS OF TRANSPLANTED LIVER [None]
  - HEPATIC ARTERY STENOSIS [None]
  - HEPATIC NEOPLASM MALIGNANT [None]
  - MYOCARDIAL INFARCTION [None]
  - PORTAL VEIN THROMBOSIS [None]
